FAERS Safety Report 7474997-X (Version None)
Quarter: 2011Q2

REPORT INFORMATION
  Report Type: 
  Country: None (occurrence: None)
  Receive Date: 20110505
  Receipt Date: 20100627
  Transmission Date: 20111010
  Serious: Yes (Other)
  Sender: FDA-Public Use
  Company Number: DE-ACCORD-006812

PATIENT
  Age: 17 Year
  Sex: Female

DRUGS (1)
  1. TOPIRAMATE [Suspect]
     Indication: MIGRAINE WITHOUT AURA

REACTIONS (1)
  - ALICE IN WONDERLAND SYNDROME [None]
